FAERS Safety Report 16632753 (Version 1)
Quarter: 2019Q3

REPORT INFORMATION
  Report Type: Spontaneous
  Country: US (occurrence: US)
  Receive Date: 20190725
  Receipt Date: 20190725
  Transmission Date: 20191004
  Serious: No
  Sender: FDA-Public Use
  Company Number: US-ABBVIE-18S-163-2430799-00

PATIENT
  Sex: Female

DRUGS (5)
  1. CYTOMEL [Suspect]
     Active Substance: LIOTHYRONINE SODIUM
     Indication: HYPOTHYROIDISM
     Route: 048
     Dates: start: 1999
  2. SYNTHROID GENERIC [Suspect]
     Active Substance: LEVOTHYROXINE SODIUM
     Indication: HYPOTHYROIDISM
     Route: 065
  3. CYTOMEL GENERIC [Suspect]
     Active Substance: LIOTHYRONINE SODIUM
     Indication: HYPOTHYROIDISM
     Route: 065
  4. MULTIVITAMINS [Suspect]
     Active Substance: VITAMINS
     Indication: PRODUCT USED FOR UNKNOWN INDICATION
     Route: 065
  5. SYNTHROID [Suspect]
     Active Substance: LEVOTHYROXINE SODIUM
     Indication: HYPOTHYROIDISM
     Route: 048
     Dates: start: 1998

REACTIONS (14)
  - Anger [Unknown]
  - Personality change [Unknown]
  - Psychotic disorder [Unknown]
  - Feeling of relaxation [Unknown]
  - Sedation [Unknown]
  - Psychomotor hyperactivity [Unknown]
  - Irritability [Unknown]
  - Agitation [Unknown]
  - Mental disorder [Unknown]
  - Somnolence [Unknown]
  - Depressed mood [Unknown]
  - Mental impairment [Unknown]
  - Aggression [Unknown]
  - Abnormal behaviour [Unknown]
